FAERS Safety Report 9067183 (Version 1)
Quarter: 2013Q1

REPORT INFORMATION
  Report Type: Report from Study
  Country: US (occurrence: US)
  Receive Date: 20130131
  Receipt Date: 20130131
  Transmission Date: 20140127
  Serious: No
  Sender: FDA-Public Use
  Company Number: US-ABBOTT-12P-163-1001252-00

PATIENT
  Age: 50 Year
  Sex: Female

DRUGS (6)
  1. HUMIRA [Suspect]
     Indication: CROHN^S DISEASE
     Dates: start: 20120919, end: 20120919
  2. HUMIRA [Suspect]
     Dates: start: 20121003
  3. AMLODIPINE [Concomitant]
     Indication: HYPERTENSION
     Dosage: 10/20MG DAILY
     Route: 048
  4. GENERIC RESTORIL [Concomitant]
     Indication: INSOMNIA
  5. GENERIC XANAX [Concomitant]
     Indication: ANXIETY
  6. VITAMIN D2 [Concomitant]
     Indication: PRODUCT USED FOR UNKNOWN INDICATION
     Dosage: MONTHLY
     Route: 048

REACTIONS (2)
  - Malaise [Unknown]
  - Pyrexia [Unknown]
